FAERS Safety Report 5136647-7 (Version None)
Quarter: 2006Q4

REPORT INFORMATION
  Report Type: 
  Country: None (occurrence: None)
  Receive Date: 20061023
  Receipt Date: 20061010
  Transmission Date: 20070319
  Serious: Yes (Other)
  Sender: FDA-Public Use
  Company Number: 2006125517

PATIENT
  Age: 70 Year
  Sex: Female
  Weight: 86.1834 kg

DRUGS (7)
  1. NEURONTIN [Suspect]
     Indication: DIABETIC NEUROPATHY
     Dosage: 1800 MG (600 MG, 3 IN 1 D)
     Dates: start: 20040601, end: 20061001
  2. LYRICA [Suspect]
     Indication: DIABETIC NEUROPATHY
     Dosage: 150 MG (75 MG, 2 IN 1 D)
     Dates: start: 20061001
  3. GLUCOPHAGE [Concomitant]
  4. AMARYL [Concomitant]
  5. AVANDIA [Concomitant]
  6. VASOTEC [Concomitant]
  7. PRILOSEC [Concomitant]

REACTIONS (18)
  - ANAEMIA [None]
  - ARTHROPATHY [None]
  - BALANCE DISORDER [None]
  - BODY HEIGHT DECREASED [None]
  - DIABETIC MICROANGIOPATHY [None]
  - DIZZINESS [None]
  - DRUG INEFFECTIVE [None]
  - HYPOTHYROIDISM [None]
  - IIIRD NERVE DISORDER [None]
  - INNER EAR DISORDER [None]
  - KNEE OPERATION [None]
  - NERVE INJURY [None]
  - NEUROPATHY [None]
  - OSTEOPENIA [None]
  - PSYCHOMOTOR HYPERACTIVITY [None]
  - REFUSAL OF EXAMINATION [None]
  - SOMNOLENCE [None]
  - VISUAL DISTURBANCE [None]
